FAERS Safety Report 10544683 (Version 3)
Quarter: 2015Q1

REPORT INFORMATION
  Report Type: Spontaneous
  Country: US (occurrence: US)
  Receive Date: 20141027
  Receipt Date: 20150130
  Transmission Date: 20150720
  Serious: Yes (Hospitalization, Other)
  Sender: FDA-Public Use
  Company Number: US-GLAXOSMITHKLINE-US2014GSK012948

PATIENT
  Sex: Female

DRUGS (1)
  1. VOTRIENT [Suspect]
     Active Substance: PAZOPANIB HYDROCHLORIDE
     Indication: RENAL CELL CARCINOMA
     Dosage: 800 MG, QD
     Dates: start: 20141006, end: 20141014

REACTIONS (6)
  - Stomatitis [Recovering/Resolving]
  - Hospice care [Unknown]
  - Dehydration [Recovering/Resolving]
  - Rehabilitation therapy [Unknown]
  - Hospitalisation [Unknown]
  - Cyst drainage [Recovering/Resolving]
